FAERS Safety Report 9643697 (Version 3)
Quarter: 2014Q1

REPORT INFORMATION
  Report Type: Spontaneous
  Country: FR (occurrence: FR)
  Receive Date: 20131024
  Receipt Date: 20140131
  Transmission Date: 20141002
  Serious: Yes (Life-Threatening, Hospitalization, Other)
  Sender: FDA-Public Use
  Company Number: FR-BRISTOL-MYERS SQUIBB COMPANY-19583780

PATIENT
  Age: 61 Year
  Sex: Female
  Weight: 100 kg

DRUGS (9)
  1. ELIQUIS [Suspect]
     Dosage: IST DOSE WAS ADMIN ON 08OCT13 MORNING 12:00 AM.?IIND DOSE WAS ADMIN ON 08OCT13 EVENING 18:00 PM.
     Route: 048
     Dates: start: 20131008, end: 20131008
  2. EXACYL [Suspect]
     Indication: HAEMORRHAGE
     Route: 042
     Dates: start: 20131007, end: 20131008
  3. ACUPAN [Concomitant]
     Indication: PAIN
     Route: 042
     Dates: start: 20131007, end: 20131008
  4. PARACETAMOL [Concomitant]
     Indication: PAIN
     Route: 048
     Dates: start: 20131007, end: 20131008
  5. ROPIVACAINE HCL [Concomitant]
     Indication: PAIN
     Dosage: PERINEURAL INJECTION AT 8 ML/H?2MG/ML IS POTENCY STRENGTH
     Route: 053
     Dates: start: 20131007, end: 20131008
  6. CEFAZOLINE [Concomitant]
     Indication: PROPHYLAXIS
     Dosage: CEFAZOLINE 1GX2 INTRAVENOUSLY
     Route: 042
     Dates: start: 20131007
  7. OXYCONTIN [Concomitant]
     Indication: PAIN
     Route: 048
     Dates: start: 20131007, end: 20131008
  8. OXYNORM [Concomitant]
     Indication: PAIN
     Route: 048
     Dates: start: 20131007, end: 20131008
  9. NISISCO [Concomitant]
     Indication: DRUG THERAPY
     Dosage: 80MG VALSARCAN/12.5 MG HYDROCHLOROTHIAZIDE
     Dates: start: 20131008, end: 20131009

REACTIONS (2)
  - Pulmonary embolism [Recovered/Resolved]
  - Drug administration error [Recovered/Resolved]
